FAERS Safety Report 23068013 (Version 1)
Quarter: 2023Q4

REPORT INFORMATION
  Report Type: Spontaneous
  Country: TW (occurrence: TW)
  Receive Date: 20231016
  Receipt Date: 20231016
  Transmission Date: 20240110
  Serious: No
  Sender: FDA-Public Use
  Company Number: TW-ALKEM LABORATORIES LIMITED-US-ALKEM-2022-13986

PATIENT
  Sex: Female

DRUGS (3)
  1. DULOXETINE [Suspect]
     Active Substance: DULOXETINE
     Indication: Depression
     Dosage: 60 MILLIGRAM, QD
     Route: 065
  2. DULOXETINE [Suspect]
     Active Substance: DULOXETINE
     Dosage: 30 MILLIGRAM
     Route: 065
  3. DULOXETINE [Suspect]
     Active Substance: DULOXETINE
     Dosage: 15 MILLIGRAM
     Route: 065

REACTIONS (3)
  - Withdrawal syndrome [Recovered/Resolved]
  - Dizziness [Recovered/Resolved]
  - Sedation [Recovered/Resolved]
